FAERS Safety Report 5331726-3 (Version None)
Quarter: 2007Q2

REPORT INFORMATION
  Report Type: 
  Country: None (occurrence: None)
  Receive Date: 20070517
  Receipt Date: 20070116
  Transmission Date: 20071010
  Serious: Yes (Other)
  Sender: FDA-Public Use
  Company Number: TKT01200600211

PATIENT
  Age: 10 Year
  Sex: Male
  Weight: 27.5 kg

DRUGS (1)
  1. IDURSULFASE (IDURSULFASE) (0.5 MILLIGRAM(S) / KILOGRAM, CONCENTRATE FO [Suspect]
     Indication: MUCOPOLYSACCHARIDOSIS II
     Dosage: (13.5 MG, 1 IN 1 WK), INTRAVENOUS DRIP
     Route: 041
     Dates: start: 20061110

REACTIONS (6)
  - ANAPHYLACTOID REACTION [None]
  - CHEST DISCOMFORT [None]
  - ERYTHEMA [None]
  - INFUSION RELATED REACTION [None]
  - URTICARIA [None]
  - WHEEZING [None]
